FAERS Safety Report 7421282-8 (Version None)
Quarter: 2011Q2

REPORT INFORMATION
  Report Type: 
  Country: None (occurrence: None)
  Receive Date: 20110418
  Receipt Date: 20110411
  Transmission Date: 20111010
  Serious: Yes (Hospitalization)
  Sender: FDA-Public Use
  Company Number: GB-MERCK-1104USA01857

PATIENT

DRUGS (2)
  1. BORTEZOMIB [Suspect]
     Indication: MULTIPLE MYELOMA
     Dosage: ON DAYS 1, 4, 8, AND 11 ON A 21 D CYCLE OR 1, 8, 15 AND 22 ON A 35D CYCLE
     Route: 042
  2. DECADRON [Suspect]
     Indication: MULTIPLE MYELOMA
     Dosage: ON THE DAY OF AND DAY AFTER BORTEZOMIB
     Route: 048

REACTIONS (2)
  - HERPES ZOSTER [None]
  - CELLULITIS [None]
